FAERS Safety Report 17722129 (Version 1)
Quarter: 2020Q2

REPORT INFORMATION
  Report Type: Spontaneous
  Country: US (occurrence: US)
  Receive Date: 20200429
  Receipt Date: 20200429
  Transmission Date: 20200714
  Serious: Yes (Hospitalization, Other)
  Sender: FDA-Public Use
  Company Number: US-009507513-2004USA008191

PATIENT
  Age: 15 Year
  Sex: Male

DRUGS (2)
  1. DECADRON [Suspect]
     Active Substance: DEXAMETHASONE
     Indication: PRODUCT USED FOR UNKNOWN INDICATION
     Dosage: UNK
     Route: 048
  2. AFINITOR [Suspect]
     Active Substance: EVEROLIMUS
     Indication: GLIOMA
     Dosage: UNK
     Route: 048
     Dates: start: 20130201, end: 20130322

REACTIONS (8)
  - Respiratory distress [Recovered/Resolved]
  - Hypertension [Unknown]
  - Adverse event [Unknown]
  - Brain injury [Recovered/Resolved]
  - Neoplasm progression [Unknown]
  - IIIrd nerve paralysis [Recovered/Resolved]
  - Visual acuity reduced [Recovered/Resolved]
  - Hypertension [Unknown]

NARRATIVE: CASE EVENT DATE: 20130301
